FAERS Safety Report 9617832 (Version 1)
Quarter: 2013Q4

REPORT INFORMATION
  Report Type: Other
  Country: DE (occurrence: DE)
  Receive Date: 20131011
  Receipt Date: 20131011
  Transmission Date: 20140711
  Serious: Yes (Death)
  Sender: FDA-Public Use
  Company Number: DE-BRISTOL-MYERS SQUIBB COMPANY-19490556

PATIENT
  Age: 61 Year
  Sex: Male

DRUGS (7)
  1. IPILIMUMAB [Suspect]
     Indication: MALIGNANT MELANOMA STAGE IV
  2. OXYCODONE [Suspect]
  3. METFORMIN HCL [Concomitant]
  4. SIMVASTATIN [Concomitant]
  5. ENALAPRIL [Concomitant]
  6. SODIUM PICOSULFATE [Concomitant]
  7. PREDNISOLONE [Concomitant]
     Route: 048

REACTIONS (2)
  - Ileus paralytic [Fatal]
  - Respiratory failure [Fatal]
